FAERS Safety Report 22061233 (Version 1)
Quarter: 2023Q1

REPORT INFORMATION
  Report Type: Other
  Country: GB (occurrence: None)
  Receive Date: 20230303
  Receipt Date: 20230303
  Transmission Date: 20230417
  Serious: Yes (Death, Other)
  Sender: FDA-Public Use
  Company Number: GB-ROCHE-2225271

PATIENT
  Sex: Male

DRUGS (1)
  1. ESBRIET [Suspect]
     Active Substance: PIRFENIDONE
     Indication: Idiopathic pulmonary fibrosis
     Dosage: 3 PER DAY
     Route: 048
     Dates: start: 201706

REACTIONS (4)
  - Malaise [Unknown]
  - Fatigue [Unknown]
  - Monoplegia [Unknown]
  - Death [Fatal]
